FAERS Safety Report 13910876 (Version 4)
Quarter: 2018Q2

REPORT INFORMATION
  Report Type: Spontaneous
  Country: FR (occurrence: FR)
  Receive Date: 20170828
  Receipt Date: 20180615
  Transmission Date: 20180711
  Serious: Yes (Other)
  Sender: FDA-Public Use
  Company Number: PHHY2016FR127695

PATIENT
  Age: 21 Year
  Sex: Female

DRUGS (4)
  1. TASIGNA [Suspect]
     Active Substance: NILOTINIB
     Indication: CHRONIC MYELOID LEUKAEMIA
     Dosage: 4 DF, QD (150 MG 2 DF IN THE MORNING AND 2 DF IN THE EVENING)
     Route: 065
     Dates: start: 20150702, end: 201609
  2. PARACETAMOL [Concomitant]
     Active Substance: ACETAMINOPHEN
     Indication: PRODUCT USED FOR UNKNOWN INDICATION
     Dosage: UNK, PRN (IF NEEDED)
     Route: 065
  3. INTERFERON [Concomitant]
     Active Substance: INTERFERON
     Indication: MUSCLE DISORDER
     Dosage: 3 MILLION UNITS
     Route: 065
     Dates: start: 20170307
  4. TARDYFERON B9 [Concomitant]
     Active Substance: FERROUS SULFATE\FOLIC ACID
     Indication: PRODUCT USED FOR UNKNOWN INDICATION
     Dosage: UNK UNK, QD
     Route: 065

REACTIONS (5)
  - Oligohydramnios [Unknown]
  - Normal newborn [Unknown]
  - Premature labour [Unknown]
  - Delivery [Unknown]
  - Maternal exposure during pregnancy [Unknown]

NARRATIVE: CASE EVENT DATE: 20160820
